FAERS Safety Report 9631080 (Version 1)
Quarter: 2013Q4

REPORT INFORMATION
  Report Type: Spontaneous
  Country: FR (occurrence: None)
  Receive Date: 20131016
  Receipt Date: 20131016
  Transmission Date: 20140711
  Serious: Yes (Death)
  Sender: FDA-Public Use
  Company Number: SYM-2013-11287

PATIENT
  Age: 12 Year
  Sex: Male

DRUGS (7)
  1. AMMONUL [Suspect]
     Indication: ARGININOSUCCINATE SYNTHETASE DEFICIENCY
     Dosage: IVSE
     Route: 042
     Dates: start: 20131001, end: 20131002
  2. ARGININE [Concomitant]
  3. INSULIN [Concomitant]
  4. NESDONAL [Concomitant]
  5. SUFENTANIL [Concomitant]
  6. DESMOPRESSIN [Concomitant]
  7. LEVETIRACETAM [Concomitant]

REACTIONS (2)
  - Brain oedema [None]
  - Intracranial pressure increased [None]
